FAERS Safety Report 20831222 (Version 1)
Quarter: 2022Q2

REPORT INFORMATION
  Report Type: Other
  Country: TR (occurrence: None)
  Receive Date: 20220515
  Receipt Date: 20220515
  Transmission Date: 20220720
  Serious: Yes (Other)
  Sender: FDA-Public Use
  Company Number: TR-Saptalis Pharmaceuticals,LLC-000234

PATIENT
  Age: 17 Year
  Sex: Female

DRUGS (1)
  1. ACETYLCARNITINE [Suspect]
     Active Substance: ACETYLCARNITINE
     Indication: Product used for unknown indication
     Dosage: 3000 MG
     Route: 048

REACTIONS (2)
  - Acute psychosis [Recovered/Resolved]
  - Aggression [Recovered/Resolved]
